FAERS Safety Report 19871433 (Version 2)
Quarter: 2021Q4

REPORT INFORMATION
  Report Type: Report from Study
  Country: US (occurrence: US)
  Receive Date: 20210923
  Receipt Date: 20211012
  Transmission Date: 20220303
  Serious: Yes (Death, Hospitalization)
  Sender: FDA-Public Use
  Company Number: US-SAREPTA THERAPEUTICS INC.-SRP2021-001683

PATIENT
  Age: 27 Year
  Sex: Male

DRUGS (1)
  1. ETEPLIRSEN [Suspect]
     Active Substance: ETEPLIRSEN
     Indication: Product used for unknown indication
     Dosage: 1600 MILLIGRAM, WEEKLY
     Route: 042

REACTIONS (3)
  - Sepsis [Fatal]
  - Testicular abscess [Unknown]
  - Genital infection [Unknown]

NARRATIVE: CASE EVENT DATE: 20210917
